FAERS Safety Report 5867108-5 (Version None)
Quarter: 2008Q3

REPORT INFORMATION
  Report Type: 
  Country: None (occurrence: None)
  Receive Date: 20080902
  Receipt Date: 20080827
  Transmission Date: 20090109
  Serious: Yes (Death, Life-Threatening, Hospitalization, Disabling)
  Sender: FDA-Public Use
  Company Number: JP-BAYER-200810962BYL

PATIENT
  Age: 52 Year
  Sex: Male
  Weight: 48 kg

DRUGS (9)
  1. NEXAVAR [Suspect]
     Indication: RENAL CELL CARCINOMA STAGE IV
     Dosage: TOTAL DAILY DOSE: 800 MG  UNIT DOSE: 200 MG
     Route: 048
     Dates: start: 20080418, end: 20080429
  2. NEXAVAR [Suspect]
     Dosage: TOTAL DAILY DOSE: 400 MG  UNIT DOSE: 200 MG
     Route: 048
     Dates: start: 20080430, end: 20080521
  3. LOXONIN [Concomitant]
     Indication: CANCER PAIN
     Route: 048
     Dates: start: 20080418
  4. MUCOSTA [Concomitant]
     Indication: PROPHYLAXIS
     Route: 048
     Dates: start: 20080418
  5. MUCODYNE [Concomitant]
     Indication: METASTASES TO LUNG
     Route: 048
     Dates: start: 20080418, end: 20080425
  6. ASTOMIN [Concomitant]
     Indication: METASTASES TO LUNG
     Route: 048
     Dates: start: 20080418, end: 20080425
  7. PASTARON SOFT OINTMENT 10!MG [Concomitant]
     Route: 061
     Dates: start: 20080425
  8. FLAVITAN [Concomitant]
     Route: 048
     Dates: start: 20080507
  9. NIZORAL LOTION [Concomitant]
     Route: 061
     Dates: start: 20080514

REACTIONS (9)
  - CARDIAC FAILURE CONGESTIVE [None]
  - CARDIOMYOPATHY [None]
  - DEATH [None]
  - DYSPHONIA [None]
  - MALAISE [None]
  - PALMAR-PLANTAR ERYTHRODYSAESTHESIA SYNDROME [None]
  - PLEURAL EFFUSION [None]
  - RASH [None]
  - SEBORRHOEIC DERMATITIS [None]
